FAERS Safety Report 5776489-2 (Version None)
Quarter: 2008Q2

REPORT INFORMATION
  Report Type: 
  Country: None (occurrence: None)
  Receive Date: 20080617
  Receipt Date: 20080617
  Transmission Date: 20081010
  Serious: Yes (Life-Threatening)
  Sender: FDA-Public Use
  Company Number: None

PATIENT
  Sex: Male
  Weight: 89.3586 kg

DRUGS (1)
  1. HURRICANE(BENZOCAINE20%) BEUTLICH LP, PHARMACEUTICALS [Suspect]
     Indication: ECHOCARDIOGRAM
     Dosage: BENZOCAINE 20% 3 SPRAYS THROAT
     Dates: start: 20080605

REACTIONS (4)
  - HYPERHIDROSIS [None]
  - MALAISE [None]
  - METHAEMOGLOBINAEMIA [None]
  - OXYGEN SATURATION DECREASED [None]
